FAERS Safety Report 23515925 (Version 1)
Quarter: 2024Q1

REPORT INFORMATION
  Report Type: Spontaneous
  Country: CN (occurrence: None)
  Receive Date: 20240213
  Receipt Date: 20240213
  Transmission Date: 20240409
  Serious: Yes (Life-Threatening)
  Sender: FDA-Public Use
  Company Number: CN-ROCHE-3506955

PATIENT
  Age: 61 Year
  Sex: Female
  Weight: 60 kg

DRUGS (3)
  1. MABTHERA [Suspect]
     Active Substance: RITUXIMAB
     Indication: Diffuse large B-cell lymphoma
     Dosage: INJECTION
     Route: 041
     Dates: start: 20231230, end: 20240101
  2. MABTHERA [Suspect]
     Active Substance: RITUXIMAB
     Dosage: INJECTION
     Route: 041
     Dates: start: 20240110, end: 20240110
  3. POLIVY [Suspect]
     Active Substance: POLATUZUMAB VEDOTIN-PIIQ
     Indication: Diffuse large B-cell lymphoma
     Route: 042
     Dates: start: 20231230, end: 20231230

REACTIONS (3)
  - Ammonia increased [Recovering/Resolving]
  - Dysphoria [Recovering/Resolving]
  - Delirium [Recovering/Resolving]

NARRATIVE: CASE EVENT DATE: 20240103
